FAERS Safety Report 9104116 (Version 3)
Quarter: 2013Q2

REPORT INFORMATION
  Report Type: Spontaneous
  Country: US (occurrence: US)
  Receive Date: 20130219
  Receipt Date: 20130424
  Transmission Date: 20140414
  Serious: Yes (Other)
  Sender: FDA-Public Use
  Company Number: US-PFIZER INC-2013056220

PATIENT
  Age: 22 Year
  Sex: Male
  Weight: 70.75 kg

DRUGS (2)
  1. BENEFIX [Suspect]
     Indication: FACTOR IX DEFICIENCY
     Dosage: 30 IU/KG, 2X/WEEK
  2. BENEFIX [Suspect]
     Indication: HAEMOPHILIA
     Dosage: 40 IU/KG, ON DEMAND WHEN THERE IS BLEEDING

REACTIONS (2)
  - Haemorrhage [Unknown]
  - Off label use [Unknown]
